FAERS Safety Report 8790071 (Version 1)
Quarter: 2012Q4

REPORT INFORMATION
  Report Type: 
  Country: US (occurrence: US)
  Receive Date: 20120917
  Receipt Date: 20120917
  Transmission Date: 20130627
  Serious: Yes (Hospitalization)
  Sender: FDA-Public Use
  Company Number: US-PFIZER INC-2012228377

PATIENT
  Age: 50 Year
  Sex: Female

DRUGS (2)
  1. BEXTRA [Suspect]
     Indication: OSTEOARTHRITIS
     Dosage: 10 mg, UNK (several times a day)
  2. LEVOTHYROXINE [Concomitant]
     Indication: HYPOTHYROIDISM
     Dosage: 100 mcg daily

REACTIONS (2)
  - Spinal disorder [Unknown]
  - Blood test abnormal [Recovered/Resolved]
